FAERS Safety Report 6869363-1 (Version None)
Quarter: 2010Q3

REPORT INFORMATION
  Report Type: 
  Country: None (occurrence: None)
  Receive Date: 20100722
  Receipt Date: 20080730
  Transmission Date: 20110219
  Serious: No
  Sender: FDA-Public Use
  Company Number: US-PFIZER INC-2008064404

PATIENT
  Age: 48 Year
  Sex: Male
  Weight: 76.4 kg

DRUGS (4)
  1. CHANTIX [Suspect]
     Indication: SMOKING CESSATION THERAPY
     Dates: start: 20080701
  2. SERZONE [Concomitant]
  3. ZYRTEC [Concomitant]
  4. CHOLESTEROL- AND TRIGLYCERIDE REDUCERS [Concomitant]

REACTIONS (3)
  - DEPRESSED MOOD [None]
  - MOOD ALTERED [None]
  - TOBACCO WITHDRAWAL SYMPTOMS [None]
